FAERS Safety Report 25571789 (Version 3)
Quarter: 2025Q3

REPORT INFORMATION
  Report Type: Spontaneous
  Country: US (occurrence: US)
  Receive Date: 20250717
  Receipt Date: 20250902
  Transmission Date: 20251020
  Serious: Yes (Other)
  Sender: PFIZER
  Company Number: US-PFIZER INC-202500142931

PATIENT
  Age: 58 Year
  Sex: Male
  Weight: 89.4 kg

DRUGS (12)
  1. PROPOFOL [Suspect]
     Active Substance: PROPOFOL
     Indication: General anaesthesia
     Dosage: 100 MG, 1X/DAY
     Route: 030
     Dates: start: 20250529, end: 20250529
  2. AMLODIPINE [Concomitant]
     Active Substance: AMLODIPINE BESYLATE
     Indication: Hypertension
     Dosage: 10 MG, DAILY
  3. ASPIRIN [Concomitant]
     Active Substance: ASPIRIN
     Indication: Cerebrovascular accident
     Dosage: 81 MG, DAILY
  4. ASPIRIN [Concomitant]
     Active Substance: ASPIRIN
     Indication: Vascular device user
  5. HYDRALAZINE [Concomitant]
     Active Substance: HYDRALAZINE HYDROCHLORIDE
     Indication: Hypertension
     Dosage: 50 MG, 3X/DAY
  6. HYDROCHLOROTHIAZIDE\LOSARTAN [Concomitant]
     Active Substance: HYDROCHLOROTHIAZIDE\LOSARTAN
     Indication: Hypertension
     Dosage: UNK UNK, DAILY
  7. PRASUGREL [Concomitant]
     Active Substance: PRASUGREL
     Indication: Vascular device user
     Dosage: 10 MG, DAILY
  8. OMEPRAZOLE [Concomitant]
     Active Substance: OMEPRAZOLE
     Indication: Gastrooesophageal reflux disease
     Dosage: 40 MG, DAILY
  9. FAMOTIDINE [Concomitant]
     Active Substance: FAMOTIDINE
     Indication: Gastrooesophageal reflux disease
     Dosage: 40 MG, DAILY(NIGHTLY)
  10. ZETIN [ACITRETIN] [Concomitant]
     Indication: Hypercholesterolaemia
     Dosage: 10 MG, DAILY
  11. TUMS [Concomitant]
     Active Substance: CALCIUM CARBONATE
     Indication: Gastrooesophageal reflux disease
  12. HYZAAR [Concomitant]
     Active Substance: HYDROCHLOROTHIAZIDE\LOSARTAN POTASSIUM
     Indication: Hypertension
     Dosage: 100/25 MG DAILY

REACTIONS (3)
  - Sedation complication [Recovered/Resolved]
  - Oxygen saturation decreased [Recovered/Resolved]
  - Hiccups [Unknown]

NARRATIVE: CASE EVENT DATE: 20250529
